FAERS Safety Report 9240148 (Version 1)
Quarter: 2013Q2

REPORT INFORMATION
  Report Type: Spontaneous
  Country: US (occurrence: None)
  Receive Date: 20130418
  Receipt Date: 20130418
  Transmission Date: 20140414
  Serious: Yes (Life-Threatening, Hospitalization, Disabling, Other)
  Sender: FDA-Public Use
  Company Number: None

PATIENT
  Age: 51 Year
  Sex: Male
  Weight: 117.94 kg

DRUGS (3)
  1. DECADRON PHOSPHATE [Suspect]
     Dates: start: 20060915
  2. DEXAMETHASONE SODIUM PHOSPHATE [Suspect]
     Indication: PAIN
     Dates: start: 20061002
  3. PREDNISONE [Concomitant]

REACTIONS (4)
  - Overdose [None]
  - Psychotic disorder [None]
  - Multiple injuries [None]
  - Product quality issue [None]
